FAERS Safety Report 4988461-0 (Version None)
Quarter: 2006Q2

REPORT INFORMATION
  Report Type: 
  Country: None (occurrence: None)
  Receive Date: 20060502
  Receipt Date: 20060417
  Transmission Date: 20061013
  Serious: Yes (Death, Hospitalization)
  Sender: FDA-Public Use
  Company Number: US-AMGEN-US176657

PATIENT
  Sex: Male

DRUGS (1)
  1. ARANESP [Suspect]
     Indication: MYELODYSPLASTIC SYNDROME
     Route: 058
     Dates: start: 20050401, end: 20060401

REACTIONS (2)
  - DEATH [None]
  - HAEMOGLOBIN DECREASED [None]
